FAERS Safety Report 9784942 (Version 1)
Quarter: 2013Q4

REPORT INFORMATION
  Report Type: Spontaneous
  Country: NL (occurrence: NL)
  Receive Date: 20131227
  Receipt Date: 20131227
  Transmission Date: 20140711
  Serious: Yes (Other)
  Sender: FDA-Public Use
  Company Number: NL-AMGEN-NLDSP2013089867

PATIENT
  Age: 83 Year
  Sex: Male

DRUGS (1)
  1. ARANESP [Suspect]
     Indication: BONE MARROW DISORDER
     Dosage: 60 MUG, UNK
     Route: 065

REACTIONS (2)
  - Haemoglobin decreased [Unknown]
  - Drug ineffective [Unknown]
